FAERS Safety Report 9014513 (Version 2)
Quarter: 2013Q1

REPORT INFORMATION
  Report Type: Report from Study
  Country: US (occurrence: US)
  Receive Date: 20130115
  Receipt Date: 20130130
  Transmission Date: 20140127
  Serious: Yes (Hospitalization)
  Sender: FDA-Public Use
  Company Number: US-JNJFOC-20130103947

PATIENT
  Age: 12 Year
  Sex: Female
  Weight: 104.9 kg

DRUGS (15)
  1. REMICADE [Suspect]
     Indication: INFLAMMATORY BOWEL DISEASE
     Route: 042
     Dates: start: 20111002
  2. VITAMIN D [Concomitant]
  3. NUBAIN [Concomitant]
  4. METHOTREXATE [Concomitant]
  5. OMEPRAZOLE [Concomitant]
  6. GUANFACINE [Concomitant]
  7. 5-ASA [Concomitant]
  8. MIRALAX [Concomitant]
  9. TYLENOL [Concomitant]
  10. MULTIVIT [Concomitant]
  11. CALCIUM CARBONATE [Concomitant]
  12. FOLIC ACID [Concomitant]
  13. ANTIBIOTICS FOR IBD [Concomitant]
  14. TRAMADOL [Concomitant]
  15. VANCOMYCIN [Concomitant]

REACTIONS (1)
  - Abdominal pain [Recovered/Resolved]
